FAERS Safety Report 8286269-4 (Version None)
Quarter: 2012Q2

REPORT INFORMATION
  Report Type: 
  Country: None (occurrence: None)
  Receive Date: 20120416
  Receipt Date: 20120402
  Transmission Date: 20120825
  Serious: Yes (Hospitalization, Other)
  Sender: FDA-Public Use
  Company Number: TW-PAR PHARMACEUTICAL, INC-2012SCPR004304

PATIENT

DRUGS (6)
  1. VENLAFAXINE [Concomitant]
     Indication: SCHIZOAFFECTIVE DISORDER
     Dosage: 150 MG, / DAY
     Route: 065
  2. PALIPERIDONE [Suspect]
     Indication: SCHIZOAFFECTIVE DISORDER
     Dosage: 3 MG, / DAY
     Route: 065
  3. RISPERIDONE [Suspect]
     Dosage: 4 MG, / DAY
     Route: 065
  4. BENZTROPINE MESYLATE [Concomitant]
     Indication: PRODUCT USED FOR UNKNOWN INDICATION
     Dosage: UNK, UNKNOWN
     Route: 065
  5. RISPERIDONE [Suspect]
     Indication: SCHIZOAFFECTIVE DISORDER
     Dosage: 4 MG, / DAY
     Route: 065
  6. LITHIUM [Concomitant]
     Indication: SCHIZOAFFECTIVE DISORDER
     Dosage: 300 MG, / DAY
     Route: 065

REACTIONS (3)
  - NEUROLEPTIC MALIGNANT SYNDROME [None]
  - RESPIRATORY FAILURE [None]
  - CHRONIC HEPATITIS [None]
